FAERS Safety Report 8964117 (Version 3)
Quarter: 2012Q4

REPORT INFORMATION
  Report Type: 
  Country: GB (occurrence: GB)
  Receive Date: 20121213
  Receipt Date: 20121227
  Transmission Date: 20130627
  Serious: Yes (Hospitalization)
  Sender: FDA-Public Use
  Company Number: GB-GLAXOSMITHKLINE-B0850765A

PATIENT
  Age: 42 Year
  Sex: Male

DRUGS (1)
  1. NARAMIG [Suspect]
     Indication: MIGRAINE
     Route: 065
     Dates: start: 200910

REACTIONS (2)
  - VIIth nerve paralysis [Recovering/Resolving]
  - Labelled drug-disease interaction medication error [Unknown]
